FAERS Safety Report 5126467-1 (Version None)
Quarter: 2006Q4

REPORT INFORMATION
  Report Type: 
  Country: None (occurrence: None)
  Receive Date: 20061010
  Receipt Date: 20060927
  Transmission Date: 20070319
  Serious: Yes (Hospitalization)
  Sender: FDA-Public Use
  Company Number: 2006118770

PATIENT
  Sex: Female

DRUGS (3)
  1. CELEBREX [Suspect]
     Dates: start: 20020101, end: 20030101
  2. BEXTRA [Suspect]
     Dates: start: 20020101, end: 20030101
  3. VIOXX [Suspect]
     Dates: start: 20030601

REACTIONS (1)
  - CEREBROVASCULAR ACCIDENT [None]
